FAERS Safety Report 7644564-3 (Version None)
Quarter: 2011Q3

REPORT INFORMATION
  Report Type: 
  Country: None (occurrence: None)
  Receive Date: 20110729
  Receipt Date: 20110726
  Transmission Date: 20111222
  Serious: Yes (Other)
  Sender: FDA-Public Use
  Company Number: NL-PFIZER INC-2011170360

PATIENT
  Age: 36 Year
  Sex: Female
  Weight: 57 kg

DRUGS (4)
  1. EFFEXOR XR [Suspect]
     Indication: DEPRESSED MOOD
     Dosage: 75 MG, UNK
     Dates: start: 20030301
  2. RITALIN [Concomitant]
     Indication: DISTURBANCE IN ATTENTION
     Dosage: 10 MG, UNK
  3. OXAZEPAM [Concomitant]
     Dosage: 10 MG, UNK
  4. TRAMADOL HYDROCHLORIDE AND ACETAMINOPHEN [Concomitant]
     Indication: NEURALGIA
     Dosage: UNK

REACTIONS (22)
  - DYSLEXIA [None]
  - NEURALGIA [None]
  - INFLUENZA LIKE ILLNESS [None]
  - MUSCULOSKELETAL STIFFNESS [None]
  - FATIGUE [None]
  - DECREASED INTEREST [None]
  - LOSS OF LIBIDO [None]
  - HEADACHE [None]
  - MOTOR DYSFUNCTION [None]
  - MYALGIA [None]
  - ARTHRALGIA [None]
  - NIGHTMARE [None]
  - VISION BLURRED [None]
  - MEMORY IMPAIRMENT [None]
  - DISTURBANCE IN ATTENTION [None]
  - WRONG TECHNIQUE IN DRUG USAGE PROCESS [None]
  - SUICIDAL IDEATION [None]
  - IRRITABILITY [None]
  - HAEMATOMA [None]
  - SPEECH DISORDER [None]
  - BRUXISM [None]
  - ALOPECIA [None]
